FAERS Safety Report 21893575 (Version 2)
Quarter: 2023Q1

REPORT INFORMATION
  Report Type: Spontaneous
  Country: SE (occurrence: SE)
  Receive Date: 20230121
  Receipt Date: 20230309
  Transmission Date: 20230418
  Serious: Yes (Hospitalization, Other)
  Sender: FDA-Public Use
  Company Number: SE-MLMSERVICE-20230104-4022851-1

PATIENT
  Age: 71 Year
  Sex: Female

DRUGS (2)
  1. ALENDRONATE [Suspect]
     Active Substance: ALENDRONATE SODIUM
     Indication: Osteoporosis
     Dosage: UNK
     Route: 048
  2. PENICILLIN V [Concomitant]
     Active Substance: PENICILLIN V
     Indication: Product used for unknown indication
     Dosage: 1.6 GRAM
     Route: 048

REACTIONS (5)
  - Bacterial infection [Unknown]
  - Haemophilus infection [Unknown]
  - Neisseria infection [Unknown]
  - Osteonecrosis of jaw [Unknown]
  - Product prescribing error [Unknown]
